FAERS Safety Report 17595006 (Version 1)
Quarter: 2020Q1

REPORT INFORMATION
  Report Type: Spontaneous
  Country: GB (occurrence: GB)
  Receive Date: 20200328
  Receipt Date: 20200328
  Transmission Date: 20200409
  Serious: Yes (Hospitalization)
  Sender: FDA-Public Use
  Company Number: GB-ACCORD-177043

PATIENT
  Age: 83 Year
  Sex: Female

DRUGS (6)
  1. DICLOFENAC [Concomitant]
     Active Substance: DICLOFENAC
     Dosage: PATIENT APPLIES TO BOTH KNEES ONCE A DAY AT NIGHT. - HELD, GASTROINTESTINAL BLEED
     Dates: start: 20190815
  2. LACIDIPINE [Concomitant]
     Active Substance: LACIDIPINE
     Dosage: (CLERKED IN NOTES AS 2MG OD, HOWEVER, PT CONFIRMS TAKES 4MG ON)
     Dates: start: 20190815
  3. NICORANDIL [Suspect]
     Active Substance: NICORANDIL
     Indication: PRODUCT USED FOR UNKNOWN INDICATION
     Dates: start: 20190815
  4. ESOMEPRAZOLE/ESOMEPRAZOLE MAGNESIUM/ESOMEPRAZOLE SODIUM [Concomitant]
     Active Substance: ESOMEPRAZOLE
     Dosage: DAY (INCREASED THIS ADMISSION TO 40MG BD IN NOTES)
     Dates: start: 20190815
  5. SERTRALINE [Suspect]
     Active Substance: SERTRALINE HYDROCHLORIDE
     Indication: PRODUCT USED FOR UNKNOWN INDICATION
     Dosage: BUT TABLETS ARE 50MG. RESUME AT DISCHARGE
     Dates: start: 20190815
  6. ATORVASTATIN [Concomitant]
     Active Substance: ATORVASTATIN
     Dosage: AT NIGHT
     Dates: start: 20190815

REACTIONS (1)
  - Upper gastrointestinal haemorrhage [Unknown]
